FAERS Safety Report 7906780-2 (Version None)
Quarter: 2011Q4

REPORT INFORMATION
  Report Type: 
  Country: None (occurrence: None)
  Receive Date: 20111110
  Receipt Date: 20111102
  Transmission Date: 20120403
  Serious: Yes (Other)
  Sender: FDA-Public Use
  Company Number: TR-JNJFOC-20111002018

PATIENT
  Age: 10 Year
  Sex: Female
  Weight: 37 kg

DRUGS (3)
  1. CONCERTA [Suspect]
     Route: 048
  2. CONCERTA [Suspect]
     Indication: ATTENTION DEFICIT/HYPERACTIVITY DISORDER
     Route: 048
  3. CONCERTA [Suspect]
     Route: 048

REACTIONS (7)
  - NAIL PICKING [None]
  - DRUG EFFECT DECREASED [None]
  - DECREASED APPETITE [None]
  - HEADACHE [None]
  - ONYCHOPHAGIA [None]
  - OBSESSIVE-COMPULSIVE DISORDER [None]
  - GRIMACING [None]
